FAERS Safety Report 17273781 (Version 1)
Quarter: 2020Q1

REPORT INFORMATION
  Report Type: Spontaneous
  Country: US (occurrence: US)
  Receive Date: 20200115
  Receipt Date: 20200115
  Transmission Date: 20200409
  Serious: No
  Sender: FDA-Public Use
  Company Number: US-PERRIGO-19US011105

PATIENT
  Age: 62 Year
  Sex: Female
  Weight: 81.63 kg

DRUGS (1)
  1. IBUPROFEN. [Suspect]
     Active Substance: IBUPROFEN
     Indication: PAIN
     Dosage: 800 MG, QD PRN
     Route: 048
     Dates: start: 201907, end: 20190907

REACTIONS (3)
  - Expired product administered [Recovered/Resolved]
  - Incorrect dose administered [Recovered/Resolved]
  - Somnolence [Recovered/Resolved]

NARRATIVE: CASE EVENT DATE: 201907
